FAERS Safety Report 13021218 (Version 1)
Quarter: 2016Q4

REPORT INFORMATION
  Report Type: Not Available
  Country: TR (occurrence: TR)
  Receive Date: 20161213
  Receipt Date: 20161213
  Transmission Date: 20170207
  Serious: No
  Sender: FDA-Public Use
  Company Number: TR-NOVEL LABORATORIES, INC-2016-04787

PATIENT
  Age: 13 Year
  Sex: Female

DRUGS (12)
  1. FLUVOXAMINE [Concomitant]
     Active Substance: FLUVOXAMINE
     Indication: PRODUCT USED FOR UNKNOWN INDICATION
     Route: 065
  2. RISPERIDONE. [Concomitant]
     Active Substance: RISPERIDONE
     Indication: PRODUCT USED FOR UNKNOWN INDICATION
     Route: 065
  3. ARIPIPRAZOLE. [Concomitant]
     Active Substance: ARIPIPRAZOLE
     Indication: PRODUCT USED FOR UNKNOWN INDICATION
     Route: 065
  4. METHYLPHENIDATE. [Suspect]
     Active Substance: METHYLPHENIDATE
     Route: 065
  5. METHYLPHENIDATE. [Suspect]
     Active Substance: METHYLPHENIDATE
     Dosage: AT MORNING
     Route: 065
  6. METHYLPHENIDATE. [Suspect]
     Active Substance: METHYLPHENIDATE
     Indication: ANXIETY DISORDER
     Route: 065
  7. METHYLPHENIDATE. [Suspect]
     Active Substance: METHYLPHENIDATE
     Dosage: AT MORNING
     Route: 065
  8. METHYLPHENIDATE. [Suspect]
     Active Substance: METHYLPHENIDATE
     Route: 065
  9. METHYLPHENIDATE. [Suspect]
     Active Substance: METHYLPHENIDATE
     Indication: OBSESSIVE-COMPULSIVE DISORDER
     Route: 065
  10. METHYLPHENIDATE. [Suspect]
     Active Substance: METHYLPHENIDATE
     Indication: ANXIETY DISORDER
     Route: 065
  11. METHYLPHENIDATE. [Suspect]
     Active Substance: METHYLPHENIDATE
     Indication: OBSESSIVE-COMPULSIVE DISORDER
     Route: 065
  12. FLUOXETINE [Concomitant]
     Active Substance: FLUOXETINE HYDROCHLORIDE
     Indication: PRODUCT USED FOR UNKNOWN INDICATION
     Route: 065

REACTIONS (5)
  - Drug withdrawal syndrome [Recovered/Resolved]
  - Decreased appetite [Unknown]
  - Nausea [Unknown]
  - Muscle spasms [Recovered/Resolved]
  - Headache [Unknown]
